FAERS Safety Report 4868072-8 (Version None)
Quarter: 2005Q4

REPORT INFORMATION
  Report Type: 
  Country: None (occurrence: None)
  Receive Date: 20051229
  Receipt Date: 20051214
  Transmission Date: 20060501
  Serious: Yes (Life-Threatening)
  Sender: FDA-Public Use
  Company Number: ES-JNJFOC-20051203505

PATIENT
  Age: 30 Year
  Sex: Female
  Weight: 70 kg

DRUGS (5)
  1. TOPAMAX [Suspect]
     Indication: MIGRAINE
     Route: 048
  2. TRYPTIZOL [Concomitant]
     Route: 048
  3. NUCLEO C.M.P. [Concomitant]
     Route: 048
  4. NUCLEO C.M.P. [Concomitant]
     Route: 048
  5. NUCLEO C.M.P. [Concomitant]
     Route: 048

REACTIONS (1)
  - AGRANULOCYTOSIS [None]
